FAERS Safety Report 11935086 (Version 1)
Quarter: 2016Q1

REPORT INFORMATION
  Report Type: Spontaneous
  Country: CN (occurrence: CN)
  Receive Date: 20160121
  Receipt Date: 20160121
  Transmission Date: 20160526
  Serious: Yes (Hospitalization)
  Sender: FDA-Public Use
  Company Number: CN-PFIZER INC-2016027250

PATIENT
  Age: 48 Year
  Sex: Male
  Weight: 89 kg

DRUGS (2)
  1. ANBONUO [Concomitant]
     Indication: HYPERTENSION
     Dosage: ONE TABLET, 1X/DAY
     Route: 048
     Dates: start: 20131119, end: 20150825
  2. ATORVASTATIN CALCIUM. [Suspect]
     Active Substance: ATORVASTATIN CALCIUM
     Indication: HYPERLIPIDAEMIA
     Dosage: 20 MG ONCE DAILY
     Route: 048
     Dates: start: 20150626, end: 20150723

REACTIONS (3)
  - Muscle tightness [Recovering/Resolving]
  - Back pain [Unknown]
  - Liver function test abnormal [Recovering/Resolving]

NARRATIVE: CASE EVENT DATE: 2015
